FAERS Safety Report 9820894 (Version 1)
Quarter: 2014Q1

REPORT INFORMATION
  Report Type: Spontaneous
  Country: US (occurrence: US)
  Receive Date: 20140116
  Receipt Date: 20140116
  Transmission Date: 20141002
  Serious: Yes (Death)
  Sender: FDA-Public Use
  Company Number: US-PFIZER INC-2014005081

PATIENT
  Age: 56 Year
  Sex: Male

DRUGS (10)
  1. OXYCODONE HYDROCHLORIDE [Suspect]
     Dosage: UNK
  2. FENTANYL [Suspect]
     Dosage: UNK
  3. ZOLPIDEM TARTRATE [Suspect]
     Dosage: UNK
  4. DEXTROMETHORPHAN HBR [Suspect]
     Dosage: UNK
  5. ACETAMINOPHEN/HYDROCODONE [Suspect]
     Dosage: UNK
  6. PENTAZOCINE [Suspect]
     Dosage: UNK
  7. BUTALBITAL [Suspect]
     Dosage: UNK
  8. AMITRIPTYLINE [Suspect]
     Dosage: UNK
  9. PROPOXYPHENE [Suspect]
     Dosage: UNK
  10. DIPHENHYDRAMINE [Suspect]
     Dosage: UNK

REACTIONS (1)
  - Drug abuse [Fatal]
